FAERS Safety Report 9266903 (Version 2)
Quarter: 2013Q2

REPORT INFORMATION
  Report Type: Spontaneous
  Country: DK (occurrence: FR)
  Receive Date: 20130502
  Receipt Date: 20130628
  Transmission Date: 20140414
  Serious: Yes (Hospitalization)
  Sender: FDA-Public Use
  Company Number: FR-FRI-1000044835

PATIENT
  Age: 36 Year
  Sex: Female

DRUGS (1)
  1. DINOPROSTONE [Suspect]
     Indication: UTERINE CERVIX DILATION PROCEDURE
     Dosage: 10 MG 1X/24 HOURS
     Route: 067
     Dates: start: 20130325, end: 20130326

REACTIONS (2)
  - Tachycardia [Recovered/Resolved]
  - Pyrexia [Recovered/Resolved]
